FAERS Safety Report 9341322 (Version 1)
Quarter: 2013Q2

REPORT INFORMATION
  Report Type: Spontaneous
  Country: US (occurrence: None)
  Receive Date: 20130610
  Receipt Date: 20130610
  Transmission Date: 20140414
  Serious: Yes (Life-Threatening)
  Sender: FDA-Public Use
  Company Number: None

PATIENT
  Age: 59 Year
  Sex: Male
  Weight: 99.79 kg

DRUGS (1)
  1. TRAMADOL HCL [Suspect]
     Indication: FIBROMYALGIA
     Route: 048
     Dates: start: 20110101, end: 20130606

REACTIONS (8)
  - Bone pain [None]
  - Neuralgia [None]
  - Dyspnoea [None]
  - Palpitations [None]
  - Condition aggravated [None]
  - Drug withdrawal syndrome [None]
  - Gastrooesophageal reflux disease [None]
  - Lyme disease [None]
